FAERS Safety Report 9128966 (Version 1)
Quarter: 2013Q1

REPORT INFORMATION
  Report Type: Report from Study
  Country: US (occurrence: US)
  Receive Date: 20130228
  Receipt Date: 20130228
  Transmission Date: 20140127
  Serious: Yes (Death)
  Sender: FDA-Public Use
  Company Number: US-ROCHE-1196422

PATIENT
  Sex: Female

DRUGS (2)
  1. CELLCEPT [Suspect]
     Indication: SYSTEMIC SCLEROSIS
     Route: 065
  2. CELLCEPT [Suspect]
     Indication: OFF LABEL USE

REACTIONS (1)
  - Death [Fatal]
